FAERS Safety Report 4642799-5 (Version None)
Quarter: 2005Q2

REPORT INFORMATION
  Report Type: 
  Country: None (occurrence: None)
  Receive Date: 20050422
  Receipt Date: 20050406
  Transmission Date: 20051028
  Serious: Yes (Hospitalization)
  Sender: FDA-Public Use
  Company Number: GB-AMGEN-UK125323

PATIENT
  Sex: Female
  Weight: 61 kg

DRUGS (11)
  1. KINERET [Suspect]
     Indication: RHEUMATOID ARTHRITIS
     Route: 065
     Dates: start: 20030201, end: 20050315
  2. METHOTREXATE [Concomitant]
     Route: 065
  3. PREDNISOLONE [Concomitant]
     Route: 065
  4. CELEBREX [Concomitant]
     Route: 065
  5. TEMAZEPAM [Concomitant]
     Route: 065
  6. AMITRIPTYLINE HCL TAB [Concomitant]
     Route: 065
  7. CALCICHEW [Concomitant]
     Route: 065
  8. LOSEC [Concomitant]
     Route: 065
  9. LIVIAL [Concomitant]
     Route: 065
  10. ISOSORBIDE MONONITRATE [Concomitant]
     Route: 065
  11. MORPHINE SULFATE [Concomitant]
     Route: 065

REACTIONS (2)
  - BREAST CANCER [None]
  - BREAST CANCER FEMALE [None]
